FAERS Safety Report 5237615-7 (Version None)
Quarter: 2007Q1

REPORT INFORMATION
  Report Type: 
  Country: None (occurrence: None)
  Receive Date: 20070213
  Receipt Date: 20070131
  Transmission Date: 20070707
  Serious: Yes (Hospitalization)
  Sender: FDA-Public Use
  Company Number: FI-AMGEN-UK209149

PATIENT
  Age: 44 Year
  Sex: Female

DRUGS (3)
  1. NEULASTA [Suspect]
     Indication: CHEMOTHERAPY
     Route: 058
  2. TAXOTERE [Concomitant]
     Route: 042
     Dates: start: 20060807, end: 20060807
  3. HERCEPTIN [Concomitant]
     Route: 042
     Dates: start: 20060807, end: 20060807

REACTIONS (7)
  - GENERALISED ERYTHEMA [None]
  - HYPERSENSITIVITY [None]
  - INJECTION SITE PRURITUS [None]
  - PHARYNGOLARYNGEAL PAIN [None]
  - PRURITUS [None]
  - THROAT IRRITATION [None]
  - URTICARIA [None]
